FAERS Safety Report 7120882-2 (Version None)
Quarter: 2010Q4

REPORT INFORMATION
  Report Type: 
  Country: None (occurrence: None)
  Receive Date: 20101119
  Receipt Date: 20101119
  Transmission Date: 20110411
  Serious: No
  Sender: FDA-Public Use
  Company Number: None

PATIENT
  Age: 42 Year
  Sex: Female
  Weight: 149.687 kg

DRUGS (1)
  1. LEVOXYL [Suspect]
     Dosage: DAILY - 100 MCG

REACTIONS (2)
  - ANXIETY [None]
  - MULTIPLE CHEMICAL SENSITIVITY [None]
